FAERS Safety Report 4444511-1 (Version None)
Quarter: 2004Q3

REPORT INFORMATION
  Report Type: 
  Country: None (occurrence: None)
  Receive Date: 20040902
  Receipt Date: 20040824
  Transmission Date: 20050211
  Serious: Yes (Other)
  Sender: FDA-Public Use
  Company Number: US-JNJFOC-20040808482

PATIENT
  Age: 35 Year
  Sex: Male

DRUGS (2)
  1. EXTRA STRENGTH TYLENOL (ACETAMINOHEN) UNSPECIFIED [Suspect]
     Indication: HEADACHE
     Dosage: 7500 MG, 1 IN 1 TOTAL
     Dates: start: 20040824, end: 20040824
  2. EXTRA STRENGTH TYLENOL (ACETAMINOHEN) UNSPECIFIED [Suspect]
     Indication: MALAISE
     Dosage: 7500 MG, 1 IN 1 TOTAL
     Dates: start: 20040824, end: 20040824

REACTIONS (8)
  - ABDOMINAL PAIN [None]
  - CARDIAC ARREST [None]
  - FEELING ABNORMAL [None]
  - HEADACHE [None]
  - MEDICATION ERROR [None]
  - MYOCARDIAL INFARCTION [None]
  - OVERDOSE [None]
  - SOMNOLENCE [None]
